FAERS Safety Report 6386106-9 (Version None)
Quarter: 2009Q4

REPORT INFORMATION
  Report Type: 
  Country: None (occurrence: None)
  Receive Date: 20091002
  Receipt Date: 20081212
  Transmission Date: 20100525
  Serious: No
  Sender: FDA-Public Use
  Company Number: US-ASTRAZENECA-2008UW27889

PATIENT
  Age: 79 Year
  Sex: Female
  Weight: 72.6 kg

DRUGS (3)
  1. ARIMIDEX [Suspect]
     Indication: BREAST CANCER
     Route: 048
     Dates: start: 20080201
  2. EFFEXOR [Concomitant]
  3. HYDROXYUREA [Concomitant]
     Dosage: 500 MG

REACTIONS (1)
  - MEMORY IMPAIRMENT [None]
